FAERS Safety Report 9099012 (Version 3)
Quarter: 2013Q1

REPORT INFORMATION
  Report Type: Spontaneous
  Country: JP (occurrence: JP)
  Receive Date: 20130214
  Receipt Date: 20130327
  Transmission Date: 20140127
  Serious: Yes (Life-Threatening, Hospitalization, Disabling)
  Sender: FDA-Public Use
  Company Number: JP-ELI_LILLY_AND_COMPANY-JP201302001583

PATIENT
  Age: 66 None
  Sex: Male
  Weight: 67 kg

DRUGS (19)
  1. HUMALOG LISPRO [Suspect]
     Indication: TYPE 1 DIABETES MELLITUS
     Dosage: 75 IU, UNK
     Route: 058
     Dates: start: 20090930, end: 20100323
  2. HUMALOG LISPRO [Suspect]
     Dosage: 82 IU, UNK
     Route: 058
     Dates: start: 20100324, end: 20100810
  3. HUMALOG LISPRO [Suspect]
     Dosage: 86 IU, UNK
     Route: 058
     Dates: start: 20100811, end: 20110405
  4. HUMALOG LISPRO [Suspect]
     Dosage: 98 IU, UNK
     Route: 058
     Dates: start: 20110406, end: 20110531
  5. HUMALOG LISPRO [Suspect]
     Dosage: 101 IU, UNK
     Route: 058
     Dates: start: 20110601, end: 201106
  6. HUMALOG LISPRO [Suspect]
     Dosage: UNK, TID
     Route: 058
     Dates: start: 20110718
  7. HUMALOG LISPRO [Suspect]
     Dosage: UNK, TID
     Route: 058
  8. LIPITOR [Concomitant]
     Indication: HYPERLIPIDAEMIA
     Dosage: 10 MG, QD
     Route: 048
  9. ACTOS [Concomitant]
     Indication: DIABETES MELLITUS
     Dosage: 15 MG, QD
     Route: 048
     Dates: end: 20110603
  10. LANTUS [Concomitant]
     Indication: TYPE 1 DIABETES MELLITUS
     Dosage: UNK
     Route: 058
     Dates: start: 20081119, end: 20090414
  11. LANTUS [Concomitant]
     Dosage: UNK
     Route: 058
     Dates: start: 20090415, end: 20090929
  12. LANTUS [Concomitant]
     Dosage: UNK
     Route: 058
     Dates: start: 20090930, end: 20091103
  13. LANTUS [Concomitant]
     Dosage: UNK
     Route: 058
     Dates: start: 20091104, end: 20100427
  14. LANTUS [Concomitant]
     Dosage: UNK
     Route: 058
     Dates: start: 20100428, end: 20100921
  15. LANTUS [Concomitant]
     Dosage: UNK
     Route: 058
     Dates: start: 20100922, end: 20110104
  16. LANTUS [Concomitant]
     Dosage: UNK
     Route: 058
     Dates: start: 20110105, end: 20110531
  17. LANTUS [Concomitant]
     Dosage: UNK
     Route: 058
     Dates: start: 20110601
  18. LANTUS [Concomitant]
     Dosage: 22 IU, EACH EVENING
     Route: 058
     Dates: start: 20110718
  19. LANTUS [Concomitant]
     Dosage: 26 IU, EACH EVENING
     Route: 058

REACTIONS (4)
  - Diabetic ketoacidosis [Recovered/Resolved]
  - Hypoglycaemic encephalopathy [Recovered/Resolved with Sequelae]
  - Hypoglycaemic coma [Recovered/Resolved with Sequelae]
  - Haematemesis [Recovered/Resolved]
